FAERS Safety Report 9628292 (Version 2)
Quarter: 2014Q3

REPORT INFORMATION
  Report Type: Report from Study
  Country: US (occurrence: US)
  Receive Date: 20131017
  Receipt Date: 20140705
  Transmission Date: 20150326
  Serious: Yes (Hospitalization, Other)
  Sender: FDA-Public Use
  Company Number: US-ALEXION PHARMACEUTICALS INC.-A201302623

PATIENT

DRUGS (1)
  1. SOLIRIS [Suspect]
     Active Substance: ECULIZUMAB
     Indication: PAROXYSMAL NOCTURNAL HAEMOGLOBINURIA
     Dosage: 900 MG, Q2W
     Route: 042
     Dates: start: 20110103

REACTIONS (12)
  - Neck pain [Unknown]
  - Platelet count decreased [Unknown]
  - Haemolysis [Unknown]
  - Thrombosis [Unknown]
  - Blood pressure increased [Unknown]
  - Speech disorder [Unknown]
  - Headache [Unknown]
  - Visual impairment [Unknown]
  - Hearing impaired [Recovering/Resolving]
  - Sinusitis [Unknown]
  - Chromaturia [Unknown]
  - Thought blocking [Recovered/Resolved]

NARRATIVE: CASE EVENT DATE: 20130925
